FAERS Safety Report 4949621-8 (Version None)
Quarter: 2006Q1

REPORT INFORMATION
  Report Type: 
  Country: None (occurrence: None)
  Receive Date: 20060315
  Receipt Date: 20060224
  Transmission Date: 20060701
  Serious: Yes (Hospitalization, Other)
  Sender: FDA-Public Use
  Company Number: US_0508120831

PATIENT
  Age: 46 Year
  Sex: Male
  Weight: 78 kg

DRUGS (16)
  1. OLANZAPINE [Suspect]
     Indication: BIPOLAR DISORDER
     Dosage: SEE IMAGE
     Dates: start: 20030513, end: 20030101
  2. OLANZAPINE [Suspect]
     Indication: BIPOLAR DISORDER
     Dosage: SEE IMAGE
     Dates: start: 20030909, end: 20031027
  3. OLANZAPINE [Suspect]
     Indication: BIPOLAR DISORDER
     Dosage: SEE IMAGE
     Dates: start: 20030909, end: 20031027
  4. OLANZAPINE [Suspect]
     Indication: BIPOLAR DISORDER
     Dosage: SEE IMAGE
     Dates: start: 19980421
  5. OLANZAPINE [Suspect]
     Indication: BIPOLAR DISORDER
     Dosage: SEE IMAGE
     Dates: start: 20031027
  6. CYMBALTA [Suspect]
     Indication: DEPRESSION
     Dosage: 30 MG,
     Dates: start: 20050707
  7. LITHIUM (LITHIUM) [Concomitant]
  8. LISINOPRIL [Concomitant]
  9. TRAZODONE HCL [Concomitant]
  10. CARISOPRODOL [Concomitant]
  11. SEROQUEL [Concomitant]
  12. DEPAKOTE [Concomitant]
  13. AMBIEN [Concomitant]
  14. PAXIL [Concomitant]
  15. ATIVAN [Concomitant]
  16. SERZONE [Concomitant]

REACTIONS (21)
  - ALCOHOL WITHDRAWAL SYNDROME [None]
  - ALCOHOLIC PANCREATITIS [None]
  - BLOOD CHOLESTEROL INCREASED [None]
  - BLOOD SODIUM DECREASED [None]
  - CONDITION AGGRAVATED [None]
  - DECREASED APPETITE [None]
  - DEPRESSED MOOD [None]
  - DIABETES MELLITUS [None]
  - DRUG INEFFECTIVE [None]
  - DRUG INTOLERANCE [None]
  - GASTROINTESTINAL HAEMORRHAGE [None]
  - HEPATIC CYST [None]
  - HEPATITIS ALCOHOLIC [None]
  - HYPERTRIGLYCERIDAEMIA [None]
  - ILEUS [None]
  - MANIA [None]
  - PRESCRIBED OVERDOSE [None]
  - SEXUAL DYSFUNCTION [None]
  - SUICIDAL IDEATION [None]
  - TREATMENT NONCOMPLIANCE [None]
  - WHITE BLOOD CELL COUNT INCREASED [None]
